FAERS Safety Report 14016708 (Version 2)
Quarter: 2017Q4

REPORT INFORMATION
  Report Type: Spontaneous
  Country: KR (occurrence: KR)
  Receive Date: 20170927
  Receipt Date: 20171011
  Transmission Date: 20180321
  Serious: Yes (Hospitalization)
  Sender: FDA-Public Use
  Company Number: KR-NOVOPROD-564739

PATIENT
  Age: 62 Year
  Sex: Female
  Weight: 68 kg

DRUGS (7)
  1. ZEMIGLO [Concomitant]
     Indication: TYPE 2 DIABETES MELLITUS
     Dosage: 50MG 1 TAB
     Route: 048
     Dates: start: 20140811, end: 20170620
  2. DIABEX [Concomitant]
     Active Substance: METFORMIN HYDROCHLORIDE
     Indication: TYPE 2 DIABETES MELLITUS
     Dosage: UNK
     Route: 048
     Dates: start: 20160516
  3. ORODIPINE [Concomitant]
     Indication: HYPERTENSION
     Dosage: 1 TAB
     Route: 048
     Dates: start: 20170324
  4. CRESTOR [Concomitant]
     Active Substance: ROSUVASTATIN CALCIUM
     Indication: THYROID MASS
     Dosage: 10MG 1 TAB
     Route: 048
     Dates: start: 201503
  5. TRITACE PROTECT [Concomitant]
     Indication: HYPERTENSION
     Dosage: 10MG 1 TAB
     Route: 048
     Dates: start: 20160125
  6. LEVEMIR [Suspect]
     Active Substance: INSULIN DETEMIR
     Indication: TYPE 2 DIABETES MELLITUS
     Dosage: 30 IU
     Route: 058
     Dates: start: 20160509, end: 20170620
  7. ACTOS [Concomitant]
     Active Substance: PIOGLITAZONE HYDROCHLORIDE
     Indication: TYPE 2 DIABETES MELLITUS
     Dosage: 30 MG (1 TAB)
     Route: 048
     Dates: start: 20160509, end: 20170620

REACTIONS (1)
  - Papillary thyroid cancer [Recovered/Resolved]

NARRATIVE: CASE EVENT DATE: 20170612
